FAERS Safety Report 4279892-5 (Version None)
Quarter: 2004Q1

REPORT INFORMATION
  Report Type: 
  Country: None (occurrence: None)
  Receive Date: 20040122
  Receipt Date: 20040108
  Transmission Date: 20041129
  Serious: Yes (Hospitalization)
  Sender: FDA-Public Use
  Company Number: FABR-10428

PATIENT
  Age: 62 Year
  Sex: Female
  Weight: 50 kg

DRUGS (5)
  1. FABRAZYME [Suspect]
     Indication: FABRY'S DISEASE
     Dosage: 50 MG Q2WKS IV
     Route: 042
     Dates: start: 20030529
  2. VALSARTAN [Concomitant]
  3. TEMOCAPIL HYDROCHLORIDE [Concomitant]
  4. ASPIRIN [Concomitant]
  5. ECABET SODIUM [Concomitant]

REACTIONS (3)
  - ATRIOVENTRICULAR BLOCK [None]
  - CONDITION AGGRAVATED [None]
  - FABRY'S DISEASE [None]
